FAERS Safety Report 19184208 (Version 1)
Quarter: 2021Q2

REPORT INFORMATION
  Report Type: Report from Study
  Country: CA (occurrence: CA)
  Receive Date: 20210427
  Receipt Date: 20210427
  Transmission Date: 20210717
  Serious: Yes (Other)
  Sender: FDA-Public Use
  Company Number: CA-JNJFOC-20210444430

PATIENT
  Age: 3 Decade
  Sex: Female

DRUGS (1)
  1. REMICADE [Suspect]
     Active Substance: INFLIXIMAB
     Indication: CROHN^S DISEASE
     Dosage: LOT NUMBER INFUSED ON 04?MAR?2021
     Route: 042
     Dates: start: 20171115

REACTIONS (3)
  - Staphylococcal infection [Unknown]
  - Flatulence [Unknown]
  - Headache [Unknown]
